FAERS Safety Report 8862288 (Version 1)
Quarter: 2012Q4

REPORT INFORMATION
  Report Type: Report from Study
  Country: CA (occurrence: CA)
  Receive Date: 20121026
  Receipt Date: 20121026
  Transmission Date: 20130627
  Serious: Yes (Other)
  Sender: FDA-Public Use
  Company Number: CA-JNJFOC-20121012707

PATIENT
  Sex: Female

DRUGS (5)
  1. REMICADE [Suspect]
     Indication: PRODUCT USED FOR UNKNOWN INDICATION
     Route: 042
  2. REMICADE [Suspect]
     Indication: PRODUCT USED FOR UNKNOWN INDICATION
     Route: 042
     Dates: start: 20121002
  3. DIPHENHYDRAMINE HYDROCHLORIDE [Concomitant]
     Indication: PREMEDICATION
     Route: 065
  4. ACETAMINOPHEN [Concomitant]
     Indication: PREMEDICATION
     Route: 048
  5. PREDNISONE [Concomitant]
     Indication: PREMEDICATION
     Route: 065

REACTIONS (2)
  - Skin wound [Unknown]
  - Laceration [Unknown]
